FAERS Safety Report 16135352 (Version 1)
Quarter: 2019Q1

REPORT INFORMATION
  Report Type: Report from Study
  Country: US (occurrence: US)
  Receive Date: 20190329
  Receipt Date: 20190329
  Transmission Date: 20190418
  Serious: Yes (Hospitalization, Other)
  Sender: FDA-Public Use
  Company Number: US-GILEAD-2019-0399516

PATIENT
  Age: 57 Year
  Sex: Male

DRUGS (1)
  1. AMBRISENTAN [Suspect]
     Active Substance: AMBRISENTAN
     Indication: PULMONARY HYPERTENSION
     Dosage: 5 MG, QD
     Route: 065
     Dates: start: 20150122

REACTIONS (6)
  - Blood pressure orthostatic abnormal [Unknown]
  - Pyrexia [Unknown]
  - Syncope [Unknown]
  - Intentional dose omission [Recovered/Resolved]
  - Pulmonary arterial hypertension [Unknown]
  - Dehydration [Unknown]
